FAERS Safety Report 5033471-0 (Version None)
Quarter: 2006Q2

REPORT INFORMATION
  Report Type: 
  Country: None (occurrence: None)
  Receive Date: 20060623
  Receipt Date: 20060615
  Transmission Date: 20061013
  Serious: Yes (Hospitalization)
  Sender: FDA-Public Use
  Company Number: 2006PK01307

PATIENT
  Age: 23964 Day
  Sex: Male
  Weight: 80 kg

DRUGS (4)
  1. CASODEX [Suspect]
     Indication: PROSTATE CANCER
     Dates: start: 20050501
  2. BELOC ZOK [Concomitant]
     Indication: HYPERTENSION
     Dates: start: 20020101
  3. EBRANTIL [Concomitant]
     Dates: start: 20050101
  4. TRENANTONE [Concomitant]
     Dates: start: 20050501

REACTIONS (1)
  - CEREBROVASCULAR ACCIDENT [None]
